FAERS Safety Report 6435965-X (Version None)
Quarter: 2009Q4

REPORT INFORMATION
  Report Type: 
  Country: None (occurrence: None)
  Receive Date: 20091111
  Receipt Date: 20091030
  Transmission Date: 20100525
  Serious: Yes (Other)
  Sender: FDA-Public Use
  Company Number: US-BAYER-200934966NA

PATIENT
  Age: 30 Year
  Sex: Female
  Weight: 86 kg

DRUGS (1)
  1. MIRENA [Suspect]
     Indication: CONTRACEPTION
     Dosage: CONTINUOUS
     Route: 015
     Dates: start: 20090201, end: 20091008

REACTIONS (3)
  - MEDICAL DEVICE COMPLICATION [None]
  - UTERINE PERFORATION [None]
  - VAGINAL HAEMORRHAGE [None]
